FAERS Safety Report 23353512 (Version 1)
Quarter: 2023Q4

REPORT INFORMATION
  Report Type: Spontaneous
  Country: JP (occurrence: JP)
  Receive Date: 20231231
  Receipt Date: 20231231
  Transmission Date: 20240110
  Serious: Yes (Other)
  Sender: FDA-Public Use
  Company Number: JP-002147023-NVSJ2023JP018543

PATIENT
  Age: 63 Year
  Sex: Male

DRUGS (1)
  1. NEORAL [Suspect]
     Active Substance: CYCLOSPORINE
     Indication: Renal transplant
     Dosage: UNK
     Route: 048

REACTIONS (4)
  - Respiratory failure [Unknown]
  - Multiple organ dysfunction syndrome [Unknown]
  - Shock [Unknown]
  - Coronavirus infection [Unknown]
